FAERS Safety Report 8616915-4 (Version None)
Quarter: 2012Q3

REPORT INFORMATION
  Report Type: 
  Country: None (occurrence: None)
  Receive Date: 20120823
  Receipt Date: 20120810
  Transmission Date: 20120928
  Serious: No
  Sender: FDA-Public Use
  Company Number: US-009507513-1208USA005920

PATIENT

DRUGS (4)
  1. FUROSEMIDE [Concomitant]
  2. JANUMET [Suspect]
     Indication: DIABETES MELLITUS
     Dosage: 1000MG/50MG, BID
     Route: 048
     Dates: start: 20111201
  3. KLOR-CON [Concomitant]
  4. METOPROLOL TARTRATE [Concomitant]

REACTIONS (1)
  - DIARRHOEA [None]
